FAERS Safety Report 7580060-X (Version None)
Quarter: 2011Q2

REPORT INFORMATION
  Report Type: 
  Country: None (occurrence: None)
  Receive Date: 20110629
  Receipt Date: 20101021
  Transmission Date: 20111010
  Serious: No
  Sender: FDA-Public Use
  Company Number: A0888324A

PATIENT
  Age: 55 Year
  Sex: Female

DRUGS (1)
  1. HYCAMTIN [Suspect]
     Route: 042

REACTIONS (2)
  - HOT FLUSH [None]
  - INFUSION RELATED REACTION [None]
